FAERS Safety Report 7399803-3 (Version None)
Quarter: 2011Q2

REPORT INFORMATION
  Report Type: 
  Country: None (occurrence: None)
  Receive Date: 20110407
  Receipt Date: 20110404
  Transmission Date: 20111010
  Serious: Yes (Death)
  Sender: FDA-Public Use
  Company Number: FR-ROCHE-769417

PATIENT
  Sex: Male

DRUGS (9)
  1. TERCIAN [Suspect]
     Indication: AGITATION
     Route: 048
     Dates: start: 20110205, end: 20110206
  2. TERCIAN [Suspect]
     Dosage: DRUG REPORTED AS TERCIAN 50 MG/5 ML INJECTABLE SOLUTION
     Route: 030
     Dates: start: 20110207, end: 20110207
  3. ABILIFY [Suspect]
     Indication: SCHIZOPHRENIA
     Route: 065
     Dates: start: 20110205, end: 20110207
  4. RIVOTRIL [Suspect]
     Dosage: DRUG REPORTED AS RIVOTRIL 2.5 MG/ML DROPS
     Route: 048
     Dates: start: 20110207, end: 20110207
  5. TERCIAN [Suspect]
     Route: 048
     Dates: start: 20110206, end: 20110207
  6. LEPTICUR [Suspect]
     Dosage: DRUG REPORTED AS LEPTICUR 10 MG/2 ML INJECTABLE SOLUTION
     Route: 030
     Dates: start: 20110207
  7. TERALITHE [Suspect]
     Indication: SCHIZOPHRENIA
     Dosage: DRUG REPORTED AS TERALITHE LP 400 MG TABLET
     Route: 048
     Dates: start: 20110205, end: 20110207
  8. RIVOTRIL [Suspect]
     Indication: AGITATION
     Route: 048
  9. HALDOL [Suspect]
     Indication: AGITATION
     Dosage: DRUG REPORTED AS HALDOL 5 MG/ML INJECTABLE SOLUTION
     Route: 030
     Dates: start: 20110207, end: 20110207

REACTIONS (1)
  - CARDIO-RESPIRATORY ARREST [None]
